FAERS Safety Report 18207717 (Version 3)
Quarter: 2020Q4

REPORT INFORMATION
  Report Type: Spontaneous
  Country: US (occurrence: US)
  Receive Date: 20200828
  Receipt Date: 20201229
  Transmission Date: 20210113
  Serious: No
  Sender: FDA-Public Use
  Company Number: US-PFIZER INC-2020332378

PATIENT
  Age: 83 Year
  Sex: Female

DRUGS (2)
  1. SUTENT [Suspect]
     Active Substance: SUNITINIB MALATE
     Dosage: 25 MG, CYCLIC [1 CAPSULE ONCE DAILY FOR 28 OF 42 DAYS (TAKES FOR 4 WEEKS AND HOLDS 2 WEEKS]
  2. SUTENT [Suspect]
     Active Substance: SUNITINIB MALATE
     Indication: GASTROINTESTINAL STROMAL TUMOUR
     Dosage: 50 MG, DAILY [1 CAPSULE ORAL DAILY]
     Route: 048

REACTIONS (1)
  - Malaise [Unknown]
